FAERS Safety Report 18386260 (Version 1)
Quarter: 2020Q4

REPORT INFORMATION
  Report Type: Spontaneous
  Country: IT (occurrence: IT)
  Receive Date: 20201015
  Receipt Date: 20201015
  Transmission Date: 20210114
  Serious: Yes (Other)
  Sender: FDA-Public Use
  Company Number: IT-AMGEN-ITASP2020164571

PATIENT
  Age: 38 Year
  Sex: Female
  Weight: 71 kg

DRUGS (7)
  1. CARBOPLATINUM [Suspect]
     Active Substance: CARBOPLATIN
     Indication: HER2 POSITIVE BREAST CANCER
     Dosage: 220 MILLIGRAM
     Route: 042
     Dates: start: 20190831, end: 20200428
  2. PERTUZUMAB. [Suspect]
     Active Substance: PERTUZUMAB
     Indication: HER2 POSITIVE BREAST CANCER
     Dosage: 420 MILLIGRAM
     Route: 042
     Dates: start: 20191231
  3. PACLITAXEL. [Suspect]
     Active Substance: PACLITAXEL
     Indication: HER2 POSITIVE BREAST CANCER
     Dosage: 160 MILLIGRAM
     Route: 042
     Dates: start: 20191231, end: 20200428
  4. ATEZOLIZUMAB. [Suspect]
     Active Substance: ATEZOLIZUMAB
     Indication: HER2 POSITIVE BREAST CANCER
     Dosage: 1200 MILLIGRAM, Q3WK
     Route: 042
     Dates: start: 20191231, end: 20200805
  5. TAMOXIFEN [Concomitant]
     Active Substance: TAMOXIFEN
     Dates: start: 20200601, end: 20200824
  6. LEVOFLOXACIN. [Concomitant]
     Active Substance: LEVOFLOXACIN
     Dates: start: 20200604, end: 20200701
  7. TRASTUZUMAB. [Suspect]
     Active Substance: TRASTUZUMAB
     Indication: HER2 POSITIVE BREAST CANCER
     Dosage: 426 MILLIGRAM
     Route: 042
     Dates: start: 20191231

REACTIONS (2)
  - Tenosynovitis [Not Recovered/Not Resolved]
  - Off label use [Unknown]

NARRATIVE: CASE EVENT DATE: 20200918
